FAERS Safety Report 7409619-7 (Version None)
Quarter: 2011Q1

REPORT INFORMATION
  Report Type: 
  Country: None (occurrence: None)
  Receive Date: 20110301
  Receipt Date: 20100610
  Transmission Date: 20110831
  Serious: Yes (Other)
  Sender: FDA-Public Use
  Company Number: RB-11245-2010

PATIENT
  Age: 18 Year
  Sex: Female

DRUGS (1)
  1. SUBOXONE [Suspect]
     Indication: DRUG ABUSE
     Dosage: (4 MG SUBLINGUAL)
     Route: 060
     Dates: start: 20090601

REACTIONS (1)
  - DRUG DEPENDENCE [None]
